FAERS Safety Report 15983845 (Version 1)
Quarter: 2019Q1

REPORT INFORMATION
  Report Type: Spontaneous
  Country: US (occurrence: US)
  Receive Date: 20190219
  Receipt Date: 20190219
  Transmission Date: 20190418
  Serious: Yes (Other)
  Sender: FDA-Public Use
  Company Number: None

PATIENT
  Age: 48 Year
  Sex: Female
  Weight: 47.25 kg

DRUGS (3)
  1. COQ10 [Concomitant]
     Active Substance: UBIDECARENONE
  2. CLARITIN [Concomitant]
     Active Substance: LORATADINE
  3. TRAMADOL 50 MG TABLETS [Suspect]
     Active Substance: TRAMADOL
     Indication: PAIN
     Dosage: ?          QUANTITY:1 TABLET(S);?
     Route: 048
     Dates: start: 20190122, end: 20190122

REACTIONS (2)
  - Hyperhidrosis [None]
  - Syncope [None]

NARRATIVE: CASE EVENT DATE: 20190122
